FAERS Safety Report 9835977 (Version 2)
Quarter: 2014Q1

REPORT INFORMATION
  Report Type: Spontaneous
  Country: BR (occurrence: BR)
  Receive Date: 20140122
  Receipt Date: 20140219
  Transmission Date: 20141002
  Serious: Yes (Hospitalization)
  Sender: FDA-Public Use
  Company Number: PHHY2014BR006755

PATIENT
  Age: 49 Year
  Sex: Female

DRUGS (4)
  1. TRILEPTAL [Suspect]
     Indication: CONVULSION
     Dosage: 2 DF, DAILY
     Route: 048
     Dates: start: 2010
  2. TRILEPTAL [Suspect]
     Dosage: 3 DF, DAILY
     Route: 048
  3. CLONAZEPAM [Concomitant]
     Indication: PHOBIA OF FLYING
     Dosage: 2 DF, QD
     Route: 048
     Dates: start: 201311
  4. CLONAZEPAM [Concomitant]
     Dosage: 1/4TH TABLET

REACTIONS (3)
  - Syncope [Recovered/Resolved]
  - Stress [Unknown]
  - Fatigue [Recovering/Resolving]
